FAERS Safety Report 6921007-6 (Version None)
Quarter: 2010Q3

REPORT INFORMATION
  Report Type: 
  Country: None (occurrence: None)
  Receive Date: 20100812
  Receipt Date: 20100804
  Transmission Date: 20110219
  Serious: Yes (Other)
  Sender: FDA-Public Use
  Company Number: GR-PFIZER INC-2010097756

PATIENT
  Age: 35 Year
  Sex: Female

DRUGS (1)
  1. VIBRAMYCIN [Suspect]
     Indication: PERIODONTITIS
     Dosage: UNK
     Route: 048
     Dates: start: 20100731, end: 20100803

REACTIONS (2)
  - DIARRHOEA [None]
  - HAEMATOCHEZIA [None]
